FAERS Safety Report 23201240 (Version 3)
Quarter: 2024Q1

REPORT INFORMATION
  Report Type: Spontaneous
  Country: US (occurrence: US)
  Receive Date: 20231118
  Receipt Date: 20240226
  Transmission Date: 20240410
  Serious: No
  Sender: FDA-Public Use
  Company Number: US-TRAVERE-2023TVT00539

PATIENT
  Age: 35 Year
  Sex: Female

DRUGS (3)
  1. FILSPARI [Suspect]
     Active Substance: SPARSENTAN
     Indication: IgA nephropathy
     Dosage: 200 MG
     Route: 048
     Dates: start: 20230914
  2. FILSPARI [Suspect]
     Active Substance: SPARSENTAN
     Indication: Chronic kidney disease
     Route: 048
     Dates: start: 202309
  3. LABETALOL [Concomitant]
     Active Substance: LABETALOL\LABETALOL HYDROCHLORIDE

REACTIONS (5)
  - Blood pressure abnormal [Recovering/Resolving]
  - Muscle spasms [Unknown]
  - Paraesthesia [Unknown]
  - Blood creatinine increased [Unknown]
  - Protein total increased [Unknown]
